FAERS Safety Report 7474880-X (Version None)
Quarter: 2011Q2

REPORT INFORMATION
  Report Type: 
  Country: None (occurrence: None)
  Receive Date: 20110512
  Receipt Date: 20110412
  Transmission Date: 20111010
  Serious: Yes (Hospitalization, Other)
  Sender: FDA-Public Use
  Company Number: US-BAYER-201041838NA

PATIENT
  Age: 19 Year
  Sex: Female
  Weight: 77.098 kg

DRUGS (2)
  1. CYMBALTA [Concomitant]
     Dosage: 30 MG, QD
  2. YAZ [Suspect]
     Indication: PRODUCT USED FOR UNKNOWN INDICATION
     Route: 048
     Dates: start: 20080301

REACTIONS (1)
  - PULMONARY EMBOLISM [None]
